FAERS Safety Report 8165308-5 (Version None)
Quarter: 2012Q1

REPORT INFORMATION
  Report Type: 
  Country: None (occurrence: None)
  Receive Date: 20120223
  Receipt Date: 20120223
  Transmission Date: 20120608
  Serious: No
  Sender: FDA-Public Use
  Company Number: None

PATIENT
  Sex: Male
  Weight: 87 kg

DRUGS (2)
  1. SENSORCAINE [Suspect]
     Indication: SURGERY
     Dosage: 1.4ML ONCE EPIDURAL
     Route: 008
     Dates: start: 20120215
  2. SENSORCAINE [Suspect]
     Indication: PAIN MANAGEMENT
     Dosage: 1.4ML ONCE EPIDURAL
     Route: 008
     Dates: start: 20120215

REACTIONS (1)
  - ANAESTHETIC COMPLICATION [None]
